FAERS Safety Report 26193362 (Version 1)
Quarter: 2025Q4

REPORT INFORMATION
  Report Type: Spontaneous
  Country: US (occurrence: US)
  Receive Date: 20251223
  Receipt Date: 20251223
  Transmission Date: 20260118
  Serious: No
  Sender: GLAUKOS
  Company Number: US-GLK-000716

PATIENT
  Age: 82 Year
  Sex: Female

DRUGS (2)
  1. IDOSE TR [Suspect]
     Active Substance: TRAVOPROST
     Indication: Open angle glaucoma
     Dosage: RIGHT EYE (OD)
     Route: 047
     Dates: start: 202511, end: 202511
  2. COSOPT [Concomitant]
     Active Substance: DORZOLAMIDE HYDROCHLORIDE\TIMOLOL MALEATE
     Indication: Intraocular pressure test
     Route: 047

REACTIONS (3)
  - Conjunctival hyperaemia [Unknown]
  - Eye pain [Unknown]
  - Intraocular pressure increased [Unknown]
